FAERS Safety Report 10267498 (Version 2)
Quarter: 2014Q2

REPORT INFORMATION
  Report Type: Report from Study
  Country: US (occurrence: US)
  Receive Date: 20140630
  Receipt Date: 20140630
  Transmission Date: 20141212
  Serious: Yes (Hospitalization, Other)
  Sender: FDA-Public Use
  Company Number: US-ELI_LILLY_AND_COMPANY-US201404003355

PATIENT
  Sex: Female
  Weight: 121.8 kg

DRUGS (24)
  1. HUMAN INSULIN (RDNA ORIGIN) REGULAR U500 [Suspect]
     Indication: PRODUCT USED FOR UNKNOWN INDICATION
     Dosage: UNK
     Route: 065
     Dates: end: 201310
  2. HUMAN INSULIN (RDNA ORIGIN) REGULAR U500 [Suspect]
     Dosage: 22 DF, EACH MORNING
     Route: 065
     Dates: start: 20140405
  3. HUMAN INSULIN (RDNA ORIGIN) REGULAR U500 [Suspect]
     Dosage: 21 DF, QD
     Route: 065
     Dates: start: 20140405
  4. HUMAN INSULIN (RDNA ORIGIN) REGULAR U500 [Suspect]
     Dosage: 17 DF, EACH EVENING
     Route: 065
     Dates: start: 20140405
  5. HUMAN INSULIN (RDNA ORIGIN) REGULAR [Suspect]
     Indication: PRODUCT USED FOR UNKNOWN INDICATION
     Route: 065
  6. DULOXETINE HYDROCHLORIDE [Concomitant]
  7. AMOXIL [Concomitant]
     Dosage: 250 MG, UNK
  8. LOPRESSOR [Concomitant]
     Dosage: 25 MG, UNK
  9. GLUCOPHAGE [Concomitant]
     Dosage: 500 MG, UNK
  10. SYNTHROID [Concomitant]
     Dosage: 125 UG, UNK
  11. NOVOLOG [Concomitant]
  12. COZAAR [Concomitant]
     Dosage: 25 MG, UNK
  13. ACTOS [Concomitant]
     Dosage: 30 MG, UNK
  14. BYETTA [Concomitant]
     Dosage: 10 UG, UNK
  15. LEVEMIR [Concomitant]
  16. LIPITOR [Concomitant]
     Dosage: 20 MG, UNK
  17. FLEXERIL [Concomitant]
     Dosage: 10 MG, UNK
  18. MELOXICAM [Concomitant]
  19. MSIR [Concomitant]
     Dosage: 30 MG, UNK
  20. LASIX [Concomitant]
     Dosage: 40 MG, UNK
  21. KLOR-CON [Concomitant]
  22. PRILOSEC [Concomitant]
     Dosage: 20 MG, UNK
  23. ISOSORBIDE [Concomitant]
  24. GLUCOSAMINE + CHONDROITIN [Concomitant]

REACTIONS (10)
  - Myocardial infarction [Unknown]
  - Diabetes mellitus inadequate control [Recovering/Resolving]
  - Blood glucose decreased [Recovered/Resolved]
  - Feeling jittery [Recovered/Resolved]
  - Dehydration [Recovered/Resolved]
  - Sensory disturbance [Recovered/Resolved]
  - Tremor [Recovered/Resolved]
  - Blood glucose decreased [Recovered/Resolved]
  - Similar reaction on previous exposure to drug [None]
  - Hypophagia [None]
